FAERS Safety Report 9487054 (Version 2)
Quarter: 2013Q3

REPORT INFORMATION
  Report Type: Report from Study
  Country: IN (occurrence: IN)
  Receive Date: 20130829
  Receipt Date: 20130829
  Transmission Date: 20140515
  Serious: Yes (Hospitalization)
  Sender: FDA-Public Use
  Company Number: PHHO2010IN13627

PATIENT
  Sex: Male
  Weight: 58 kg

DRUGS (8)
  1. ALISKIREN [Suspect]
     Indication: CARDIOVASCULAR DISORDER
     Route: 048
     Dates: start: 20091015, end: 20100908
  2. ACE INHIBITOR NOS [Concomitant]
  3. TAXIM [Concomitant]
  4. AMLODIPINE [Concomitant]
  5. RAMISTAR-A [Concomitant]
  6. GLIPIZIDE W/METFORMIN [Concomitant]
  7. PIOGLITAZONE [Concomitant]
  8. METOPROLOL [Concomitant]

REACTIONS (13)
  - Hepatocellular carcinoma [Not Recovered/Not Resolved]
  - Hepatomegaly [Recovering/Resolving]
  - Jaundice [Recovering/Resolving]
  - Pyrexia [Recovering/Resolving]
  - Chromaturia [Recovering/Resolving]
  - Decreased appetite [Recovering/Resolving]
  - Blood bilirubin increased [Recovering/Resolving]
  - Aspartate aminotransferase increased [Recovering/Resolving]
  - Alanine aminotransferase increased [Recovering/Resolving]
  - Urinary tract infection [Recovering/Resolving]
  - Pyuria [Recovering/Resolving]
  - Nodule [Not Recovered/Not Resolved]
  - Portal vein thrombosis [Not Recovered/Not Resolved]
